FAERS Safety Report 10611428 (Version 1)
Quarter: 2014Q4

REPORT INFORMATION
  Report Type: Spontaneous
  Country: TR (occurrence: None)
  Receive Date: 20141124
  Receipt Date: 20141124
  Transmission Date: 20150529
  Serious: Yes (Death, Hospitalization, Other)
  Sender: FDA-Public Use
  Company Number: TR-ZYDUS-005537

PATIENT
  Age: 43 Year
  Sex: Female

DRUGS (1)
  1. LANSOPRAZOLE. [Suspect]
     Active Substance: LANSOPRAZOLE
     Indication: DYSPEPSIA

REACTIONS (14)
  - Rash generalised [None]
  - Brain oedema [None]
  - Oliguria [None]
  - Anaphylactic reaction [None]
  - Respiratory arrest [None]
  - Multi-organ disorder [None]
  - Loss of consciousness [None]
  - Periorbital oedema [None]
  - Lactic acidosis [None]
  - Hepatic enzyme increased [None]
  - Hypoxia [None]
  - Hypersensitivity [None]
  - Metabolic acidosis [None]
  - Cardiac arrest [None]
